FAERS Safety Report 5597043-1 (Version None)
Quarter: 2008Q1

REPORT INFORMATION
  Report Type: 
  Country: None (occurrence: None)
  Receive Date: 20080121
  Receipt Date: 20080115
  Transmission Date: 20080703
  Serious: Yes (Hospitalization)
  Sender: FDA-Public Use
  Company Number: FR-TEVA-165815USA

PATIENT
  Age: 45 Year
  Sex: Female

DRUGS (4)
  1. PIMOZIDE TABLETS [Suspect]
     Route: 048
  2. SERTRALINE [Suspect]
     Route: 048
  3. TRIHEXYPHENIDYL HYDROCHLORIDE [Concomitant]
     Route: 048
  4. NORETHINDRONE ACETATE [Concomitant]
     Route: 048

REACTIONS (2)
  - HYPONATRAEMIA [None]
  - RHABDOMYOLYSIS [None]
